FAERS Safety Report 6820316-9 (Version None)
Quarter: 2010Q3

REPORT INFORMATION
  Report Type: 
  Country: None (occurrence: None)
  Receive Date: 20100707
  Receipt Date: 20100623
  Transmission Date: 20110219
  Serious: Yes (Other)
  Sender: FDA-Public Use
  Company Number: PHHY2010CA41922

PATIENT
  Sex: Female

DRUGS (1)
  1. ACLASTA [Suspect]
     Indication: OSTEOPOROSIS
     Dosage: 5 MG PER 100 ML
     Route: 042
     Dates: start: 20100612

REACTIONS (6)
  - FEELING HOT [None]
  - INFLUENZA LIKE ILLNESS [None]
  - MUSCULOSKELETAL CHEST PAIN [None]
  - MUSCULOSKELETAL STIFFNESS [None]
  - PAIN [None]
  - SWELLING [None]
